FAERS Safety Report 21602512 (Version 2)
Quarter: 2022Q4

REPORT INFORMATION
  Report Type: Report from Study
  Country: DE (occurrence: DE)
  Receive Date: 20221116
  Receipt Date: 20221129
  Transmission Date: 20230113
  Serious: Yes (Death, Life-Threatening, Hospitalization, Disabling, Other)
  Sender: FDA-Public Use
  Company Number: DE-SA-SAC20221107000653

PATIENT
  Age: 78 Year
  Sex: Male
  Weight: 76.6 kg

DRUGS (8)
  1. AFLIBERCEPT [Suspect]
     Active Substance: AFLIBERCEPT
     Indication: Chemotherapy
     Dosage: 324 MG, 1X
     Route: 042
     Dates: start: 20220816, end: 20221026
  2. LEUCOVORIN CALCIUM [Suspect]
     Active Substance: LEUCOVORIN CALCIUM
     Indication: Chemotherapy
     Dosage: 710.5 MG, 1X
     Route: 042
     Dates: start: 20220816, end: 20221026
  3. FLUOROURACIL [Suspect]
     Active Substance: FLUOROURACIL
     Indication: Chemotherapy
     Dosage: 1948.8 MG, QD
     Route: 042
     Dates: start: 20220816, end: 20221027
  4. TAMSULOSIN [Concomitant]
     Active Substance: TAMSULOSIN
     Indication: Prostatomegaly
     Dosage: 0.4 MG, QD
     Route: 048
     Dates: start: 20220914, end: 20221110
  5. SIMETICON [Concomitant]
     Indication: Flatulence
     Dosage: 20 ML, TID
     Route: 048
     Dates: start: 20220927, end: 20221110
  6. HERBALS\PLANTAGO OVATA LEAF [Concomitant]
     Active Substance: HERBALS\PLANTAGO OVATA LEAF
     Indication: Constipation
     Dosage: UNK, QD
     Route: 048
     Dates: start: 20221027, end: 20221110
  7. METAMIZOLE [Concomitant]
     Active Substance: METAMIZOLE
     Indication: Pain
     Dosage: 500 MG, TID
     Route: 048
     Dates: start: 20221030, end: 20221110
  8. FURADIN [Concomitant]
     Indication: Cystitis
     Dosage: 100 MG, QD
     Route: 048
     Dates: start: 20221026, end: 20221110

REACTIONS (7)
  - Multiple organ dysfunction syndrome [Fatal]
  - Necrotising fasciitis [Fatal]
  - Sepsis [Fatal]
  - Clostridium test positive [Fatal]
  - Enterococcus test positive [Fatal]
  - Pain in extremity [Not Recovered/Not Resolved]
  - Condition aggravated [Not Recovered/Not Resolved]

NARRATIVE: CASE EVENT DATE: 20221029
